FAERS Safety Report 21641935 (Version 3)
Quarter: 2022Q4

REPORT INFORMATION
  Report Type: Spontaneous
  Country: NL (occurrence: NL)
  Receive Date: 20221125
  Receipt Date: 20221220
  Transmission Date: 20230113
  Serious: Yes (Life-Threatening)
  Sender: FDA-Public Use
  Company Number: None

PATIENT
  Sex: Male
  Weight: 78 kg

DRUGS (10)
  1. CASPOFUNGIN ACETATE [Suspect]
     Active Substance: CASPOFUNGIN ACETATE
     Indication: Systemic candida
     Dosage: ONE-TIME
     Dates: start: 20221102, end: 20221102
  2. POSACONAZOLE [Concomitant]
     Active Substance: POSACONAZOLE
     Dosage: STOMACH ACID RESISTANT TABLET, 100 MG (MILLIGRAM)
  3. PHYTONADIONE [Concomitant]
     Active Substance: PHYTONADIONE
     Dosage: INJECTION FLUID, 10 MG/ML (MILLIGRAM PER MILLILITER)
  4. POTASSIUM CHLORIDE [Concomitant]
     Active Substance: POTASSIUM CHLORIDE
     Dosage: INFUSION, 1 MG/MG (MILLIGRAM PER MILLIGRAM)
  5. TEMAZEPAM [Concomitant]
     Active Substance: TEMAZEPAM
     Dosage: CAPSULE, 10 MG (MILLIGRAM)
  6. URSODEOXYCHOLZUUR [Concomitant]
     Dosage: TABLET, 600 MG (MILLIGRAM)
  7. IOMEPROL [Concomitant]
     Active Substance: IOMEPROL
     Dosage: INJECTION FLUID, 350 MGI/ML
  8. CEFTAZIDIME [Concomitant]
     Active Substance: CEFTAZIDIME
     Dosage: POWDER INJECTION FLUID, 2000 MG (MILLIGRAM)
  9. PREDNISOLONE [Concomitant]
     Active Substance: PREDNISOLONE
     Dosage: CAPSULE, 60 MG (MILLIGRAM)
  10. CLEMASTINE [Concomitant]
     Active Substance: CLEMASTINE
     Dosage: INJECTION FLUID, 1 MG/ML (MILLIGRAM PER MILLILITER)

REACTIONS (4)
  - Sinus bradycardia [Recovered/Resolved]
  - Hypotension [Recovered/Resolved]
  - Hypothermia [Recovered/Resolved]
  - Atrioventricular block first degree [Recovered/Resolved]
